FAERS Safety Report 5263982-4 (Version None)
Quarter: 2007Q1

REPORT INFORMATION
  Report Type: 
  Country: None (occurrence: None)
  Receive Date: 20070313
  Receipt Date: 20070306
  Transmission Date: 20070707
  Serious: Yes (Death, Other)
  Sender: FDA-Public Use
  Company Number: HQWYE940107MAR07

PATIENT
  Sex: Female
  Weight: 49 kg

DRUGS (9)
  1. MYLOTARG [Suspect]
     Indication: ACUTE MYELOID LEUKAEMIA RECURRENT
     Route: 041
     Dates: start: 20060911, end: 20060911
  2. MYLOTARG [Suspect]
     Route: 041
     Dates: start: 20060919, end: 20060919
  3. LIPOVAS ^BANYU^ [Concomitant]
     Dosage: 5 MG DAILY
     Route: 048
     Dates: start: 20060907, end: 20061002
  4. SOLU-MEDROL [Suspect]
     Indication: CHEMOTHERAPY
     Dosage: 125 MG DAILY
     Route: 041
     Dates: start: 20060929, end: 20061002
  5. FLUCONAZOLE [Concomitant]
     Indication: PROPHYLAXIS
     Dosage: 200 MG DAILY
     Route: 048
     Dates: start: 20060907, end: 20061002
  6. DAUNORUBICIN HYDROCHLORIDE [Concomitant]
     Indication: ACUTE MYELOID LEUKAEMIA RECURRENT
     Dosage: UNKNOWN
     Route: 042
     Dates: start: 20060929, end: 20061002
  7. ENOCITABINE [Concomitant]
     Indication: ACUTE MYELOID LEUKAEMIA RECURRENT
     Dosage: UNKNOWN
     Route: 042
     Dates: start: 20060929, end: 20061002
  8. FAMOTIDINE [Concomitant]
     Dosage: 40 MG DAILY
     Route: 048
     Dates: start: 20060907, end: 20061002
  9. MICARDIS [Concomitant]
     Dosage: 40 MG DAILY
     Route: 048
     Dates: start: 20060907, end: 20061002

REACTIONS (5)
  - BLOOD LACTATE DEHYDROGENASE INCREASED [None]
  - BLOOD POTASSIUM DECREASED [None]
  - FIBRIN DEGRADATION PRODUCTS INCREASED [None]
  - NEUTROPHIL COUNT DECREASED [None]
  - SEPSIS [None]
